FAERS Safety Report 24893579 (Version 3)
Quarter: 2025Q1

REPORT INFORMATION
  Report Type: Spontaneous
  Country: US (occurrence: US)
  Receive Date: 20250128
  Receipt Date: 20250217
  Transmission Date: 20250408
  Serious: Yes (Hospitalization, Other)
  Sender: ABBVIE
  Company Number: US-ABBVIE-6105835

PATIENT
  Age: 76 Year
  Sex: Female

DRUGS (1)
  1. ELAHERE [Suspect]
     Active Substance: MIRVETUXIMAB SORAVTANSINE-GYNX
     Indication: Ovarian cancer
     Route: 042
     Dates: start: 20241007

REACTIONS (4)
  - Intestinal perforation [Unknown]
  - Diarrhoea [Not Recovered/Not Resolved]
  - Aphasia [Unknown]
  - Mental status changes [Unknown]

NARRATIVE: CASE EVENT DATE: 20240101
